FAERS Safety Report 18131767 (Version 2)
Quarter: 2020Q4

REPORT INFORMATION
  Report Type: Report from Study
  Country: US (occurrence: US)
  Receive Date: 20200810
  Receipt Date: 20201013
  Transmission Date: 20210113
  Serious: Yes (Death, Hospitalization)
  Sender: FDA-Public Use
  Company Number: US-EXELIXIS-CABO-20031820

PATIENT
  Sex: Male

DRUGS (1)
  1. CABOMETYX [Suspect]
     Active Substance: CABOZANTINIB S-MALATE
     Indication: RENAL CANCER
     Dosage: 40 MG, QD

REACTIONS (6)
  - Death [Fatal]
  - Blood pressure increased [Unknown]
  - Decreased appetite [Unknown]
  - Posture abnormal [Unknown]
  - Hypersomnia [Unknown]
  - Dysarthria [Unknown]
